FAERS Safety Report 10166404 (Version 1)
Quarter: 2014Q2

REPORT INFORMATION
  Report Type: Spontaneous
  Country: US (occurrence: US)
  Receive Date: 20140512
  Receipt Date: 20140512
  Transmission Date: 20141212
  Serious: Yes (Other)
  Sender: FDA-Public Use
  Company Number: US-TEVA-465419USA

PATIENT
  Age: 60 Year
  Sex: Female

DRUGS (1)
  1. GRANIX [Suspect]

REACTIONS (1)
  - White blood cell count increased [Unknown]
